FAERS Safety Report 7507495-5 (Version None)
Quarter: 2011Q2

REPORT INFORMATION
  Report Type: 
  Country: None (occurrence: None)
  Receive Date: 20110526
  Receipt Date: 20110517
  Transmission Date: 20111010
  Serious: Yes (Hospitalization)
  Sender: FDA-Public Use
  Company Number: US-BAXTER-2011BH014283

PATIENT
  Sex: Male

DRUGS (2)
  1. DIANEAL [Suspect]
     Indication: PERITONEAL DIALYSIS
     Route: 033
     Dates: start: 20110307, end: 20110505
  2. DIANEAL [Suspect]
     Route: 033
     Dates: start: 20110509

REACTIONS (3)
  - PYREXIA [None]
  - MALAISE [None]
  - PNEUMONIA [None]
